FAERS Safety Report 13204381 (Version 4)
Quarter: 2019Q3

REPORT INFORMATION
  Report Type: Spontaneous
  Country: JP (occurrence: JP)
  Receive Date: 20170209
  Receipt Date: 20190703
  Transmission Date: 20191004
  Serious: Yes (Hospitalization)
  Sender: FDA-Public Use
  Company Number: JP-JNJFOC-20170208533

PATIENT
  Age: 51 Year
  Sex: Male
  Weight: 66 kg

DRUGS (7)
  1. CANAGLIFLOZIN TABLET [Suspect]
     Active Substance: CANAGLIFLOZIN
     Indication: TYPE 2 DIABETES MELLITUS
     Route: 048
     Dates: start: 20151218
  2. LIPIDIL [Concomitant]
     Active Substance: FENOFIBRATE
     Route: 048
     Dates: start: 20120425
  3. TRESIBA [Concomitant]
     Active Substance: INSULIN DEGLUDEC
     Indication: TYPE 2 DIABETES MELLITUS
     Route: 051
     Dates: start: 20140822, end: 20170110
  4. GLACTIV [Concomitant]
     Active Substance: SITAGLIPTIN
     Indication: TYPE 2 DIABETES MELLITUS
     Route: 048
     Dates: start: 20170111
  5. TRESIBA [Concomitant]
     Active Substance: INSULIN DEGLUDEC
     Route: 051
     Dates: start: 20170111, end: 20170404
  6. TRESIBA [Concomitant]
     Active Substance: INSULIN DEGLUDEC
     Route: 051
     Dates: start: 20170405, end: 20170627
  7. SUINY [Concomitant]
     Active Substance: ANAGLIPTIN
     Indication: TYPE 2 DIABETES MELLITUS
     Route: 048
     Dates: start: 20160212, end: 20170110

REACTIONS (3)
  - Road traffic accident [Recovered/Resolved]
  - Fracture [Recovered/Resolved]
  - Hepatic function abnormal [Recovering/Resolving]

NARRATIVE: CASE EVENT DATE: 2016
